FAERS Safety Report 7729478-2 (Version None)
Quarter: 2011Q3

REPORT INFORMATION
  Report Type: 
  Country: None (occurrence: None)
  Receive Date: 20110906
  Receipt Date: 20110824
  Transmission Date: 20111222
  Serious: Yes (Hospitalization)
  Sender: FDA-Public Use
  Company Number: JP-JNJFOC-20110302458

PATIENT
  Sex: Female
  Weight: 55 kg

DRUGS (12)
  1. CYSVON [Concomitant]
     Indication: INSOMNIA
     Route: 048
     Dates: start: 20110222
  2. INVEGA [Suspect]
     Indication: EPILEPTIC PSYCHOSIS
     Route: 048
     Dates: start: 20110222, end: 20110225
  3. INVEGA [Suspect]
     Route: 048
     Dates: start: 20110118, end: 20110221
  4. MAGMITT [Concomitant]
     Indication: CONSTIPATION
     Route: 048
  5. CLONAZEPAM [Concomitant]
     Indication: EPILEPTIC PSYCHOSIS
     Route: 048
  6. RISPERIDONE [Suspect]
     Indication: EPILEPTIC PSYCHOSIS
     Route: 048
     Dates: start: 20110118, end: 20110222
  7. CARBAMAZEPINE [Concomitant]
     Indication: EPILEPSY
     Route: 048
  8. VALPROATE SODIUM [Concomitant]
     Indication: EPILEPSY
     Route: 048
  9. CEFPODOXIME PROXETIL [Concomitant]
     Indication: RESPIRATORY FUME INHALATION DISORDER
     Route: 048
     Dates: start: 20110208, end: 20110212
  10. TRANEXAMIC ACID [Concomitant]
     Indication: RESPIRATORY FUME INHALATION DISORDER
     Route: 048
     Dates: start: 20110208, end: 20110212
  11. MICARDIS [Concomitant]
     Indication: HYPERTENSION
     Route: 048
     Dates: start: 20091218
  12. METHISTA [Concomitant]
     Indication: RESPIRATORY FUME INHALATION DISORDER
     Route: 048
     Dates: start: 20110208, end: 20110212

REACTIONS (1)
  - RHABDOMYOLYSIS [None]
